FAERS Safety Report 12757456 (Version 1)
Quarter: 2016Q3

REPORT INFORMATION
  Report Type: Spontaneous
  Country: GB (occurrence: GB)
  Receive Date: 20160919
  Receipt Date: 20160919
  Transmission Date: 20161109
  Serious: Yes (Other)
  Sender: FDA-Public Use
  Company Number: GB-CIPLA LTD.-2016GB18166

PATIENT

DRUGS (1)
  1. CETIRIZINE [Suspect]
     Active Substance: CETIRIZINE HYDROCHLORIDE
     Indication: RASH
     Dosage: 10 MG, UNK
     Route: 048
     Dates: start: 20160821, end: 20160822

REACTIONS (8)
  - Rash pruritic [Recovered/Resolved]
  - Local swelling [Recovered/Resolved]
  - Skin warm [Recovered/Resolved]
  - Papule [Recovered/Resolved]
  - Hypersensitivity [Recovered/Resolved]
  - Swelling face [Recovered/Resolved]
  - Eye swelling [Recovered/Resolved]
  - Throat tightness [Recovered/Resolved]

NARRATIVE: CASE EVENT DATE: 20160822
